FAERS Safety Report 5973835-1 (Version None)
Quarter: 2008Q4

REPORT INFORMATION
  Report Type: 
  Country: None (occurrence: None)
  Receive Date: 20081201
  Receipt Date: 20081119
  Transmission Date: 20090506
  Serious: Yes (Death)
  Sender: FDA-Public Use
  Company Number: NZ-ROCHE-598039

PATIENT
  Age: 44 Year
  Sex: Male

DRUGS (1)
  1. PEGASYS [Suspect]
     Indication: DRUG USE FOR UNKNOWN INDICATION
     Dosage: FROM: PFS (PRE-FILLED SYRINGE)
     Route: 058

REACTIONS (1)
  - DEATH [None]
